FAERS Safety Report 5001526-2 (Version None)
Quarter: 2006Q2

REPORT INFORMATION
  Report Type: 
  Country: None (occurrence: None)
  Receive Date: 20060512
  Receipt Date: 20060209
  Transmission Date: 20061013
  Serious: Yes (Hospitalization)
  Sender: FDA-Public Use
  Company Number: US-MERCK-0602USA02435

PATIENT
  Age: 71 Year
  Sex: Male
  Weight: 91 kg

DRUGS (15)
  1. VIOXX [Suspect]
     Indication: PAIN
     Route: 048
     Dates: start: 20021001, end: 20040901
  2. SUDAFED [Concomitant]
     Route: 065
  3. ASPIRIN [Concomitant]
     Route: 065
  4. FOSINOPRIL SODIUM [Concomitant]
     Route: 065
  5. PAXIL [Concomitant]
     Route: 065
  6. PLAVIX [Concomitant]
     Route: 065
  7. CLONAZEPAM [Concomitant]
     Route: 065
  8. ISOSORBIDE DINITRATE [Concomitant]
     Route: 065
  9. METOPROLOL TARTRATE [Concomitant]
     Route: 065
  10. CLONIDINE HYDROCHLORIDE [Concomitant]
     Route: 065
  11. FUROSEMIDE [Concomitant]
     Route: 065
  12. ZOCOR [Concomitant]
     Route: 065
  13. AVAPRO [Concomitant]
     Route: 065
  14. ALPHAGAN [Concomitant]
     Route: 065
  15. TRAVATAN [Concomitant]
     Route: 065

REACTIONS (1)
  - MYOCARDIAL INFARCTION [None]
